FAERS Safety Report 18685734 (Version 1)
Quarter: 2020Q4

REPORT INFORMATION
  Report Type: Spontaneous
  Country: US (occurrence: US)
  Receive Date: 20201231
  Receipt Date: 20201231
  Transmission Date: 20210114
  Serious: Yes (Hospitalization, Other)
  Sender: FDA-Public Use
  Company Number: US-AMGEN-USASP2020209978

PATIENT
  Age: 51 Year
  Sex: Male

DRUGS (1)
  1. AVSOLA [Suspect]
     Active Substance: INFLIXIMAB-AXXQ
     Indication: COLITIS
     Dosage: UNK
     Route: 065

REACTIONS (4)
  - Vanishing bile duct syndrome [Unknown]
  - Cytomegalovirus colitis [Unknown]
  - Off label use [Unknown]
  - Cholestasis [Unknown]
